FAERS Safety Report 16419740 (Version 2)
Quarter: 2019Q2

REPORT INFORMATION
  Report Type: Report from Study
  Country: CA (occurrence: CA)
  Receive Date: 20190612
  Receipt Date: 20190617
  Transmission Date: 20190711
  Serious: No
  Sender: FDA-Public Use
  Company Number: CA-ROCHE-2335163

PATIENT
  Age: 62 Year
  Sex: Female

DRUGS (13)
  1. RISEDRONATE [Concomitant]
     Active Substance: RISEDRONATE SODIUM
     Indication: OSTEOPOROSIS
     Dosage: ONGOING: YES
     Route: 065
  2. CRANBERRY [VACCINIUM SPP.] [Concomitant]
     Route: 065
  3. MAGNESIUM [Concomitant]
     Active Substance: MAGNESIUM
     Route: 065
  4. OMEPRAZOLE. [Concomitant]
     Active Substance: OMEPRAZOLE
     Dosage: ONGOING: YES
     Route: 065
  5. VITAMIN C [Concomitant]
     Active Substance: ASCORBIC ACID
     Route: 065
  6. LECITHIN [Concomitant]
     Active Substance: LECITHIN
     Route: 065
  7. MONUROL [Suspect]
     Active Substance: FOSFOMYCIN TROMETHAMINE
     Indication: PRODUCT USED FOR UNKNOWN INDICATION
     Dosage: 1 DOSE
     Route: 065
  8. CITALOPRAM [Concomitant]
     Active Substance: CITALOPRAM HYDROBROMIDE
     Dosage: ONGOING: YES
     Route: 065
  9. BACLOFEN. [Concomitant]
     Active Substance: BACLOFEN
     Dosage: 10 MG 2 TABLETS A DAY ;ONGOING: YES
     Route: 065
  10. COUGH AND COLD PREPARATIONS [Concomitant]
     Active Substance: UNSPECIFIED INGREDIENT
     Dosage: ONGOING: YES
     Route: 065
  11. CLONIDINE. [Concomitant]
     Active Substance: CLONIDINE
     Route: 065
  12. CARBAMAZEPINE. [Concomitant]
     Active Substance: CARBAMAZEPINE
     Dosage: ONGOING: YES
     Route: 065
  13. OCREVUS [Suspect]
     Active Substance: OCRELIZUMAB
     Indication: RELAPSING-REMITTING MULTIPLE SCLEROSIS
     Dosage: 300 MG AT DAY 0 AND 14, THEN 600 MG EVERY 6 MONTH ;ONGOING: YES
     Route: 042
     Dates: start: 20190530

REACTIONS (4)
  - Hypoaesthesia [Recovering/Resolving]
  - Drug ineffective [Unknown]
  - Urinary tract infection [Recovered/Resolved]
  - Fatigue [Recovering/Resolving]

NARRATIVE: CASE EVENT DATE: 201906
